FAERS Safety Report 10197016 (Version 1)
Quarter: 2014Q2

REPORT INFORMATION
  Report Type: Spontaneous
  Country: US (occurrence: None)
  Receive Date: 20140523
  Receipt Date: 20140523
  Transmission Date: 20141212
  Serious: Yes (Hospitalization)
  Sender: FDA-Public Use
  Company Number: None

PATIENT
  Age: 65 Year
  Sex: Male

DRUGS (2)
  1. ENALAPRIL [Suspect]
     Indication: CARDIAC FAILURE CONGESTIVE
     Route: 048
     Dates: start: 20140409
  2. SPIRONOLACTONE [Suspect]
     Route: 048

REACTIONS (3)
  - Renal failure acute [None]
  - Hyperkalaemia [None]
  - Incorrect dose administered [None]
